FAERS Safety Report 6062990-3 (Version None)
Quarter: 2009Q1

REPORT INFORMATION
  Report Type: 
  Country: None (occurrence: None)
  Receive Date: 20090203
  Receipt Date: 20090128
  Transmission Date: 20090719
  Serious: Yes (Life-Threatening)
  Sender: FDA-Public Use
  Company Number: B0556377A

PATIENT
  Age: 41 Year
  Sex: Female

DRUGS (11)
  1. CLAMOXYL [Suspect]
     Indication: DRUG USE FOR UNKNOWN INDICATION
     Dosage: 2G PER DAY
     Route: 048
     Dates: start: 20081021, end: 20081026
  2. FANSIDAR [Suspect]
     Route: 048
     Dates: start: 20081023, end: 20081024
  3. FOSCAVIR [Suspect]
     Dosage: 180MG PER DAY
     Dates: start: 20081022, end: 20081024
  4. NEORAL [Suspect]
     Dosage: 240MG PER DAY
     Route: 048
     Dates: start: 20080929, end: 20081024
  5. POSACONAZOLE [Suspect]
     Dosage: 800MG PER DAY
     Route: 048
     Dates: start: 20081021, end: 20081026
  6. CORTANCYL [Concomitant]
     Route: 065
  7. LEDERFOLINE [Concomitant]
     Route: 065
  8. STILNOX [Concomitant]
     Route: 065
  9. CALCIDOSE [Concomitant]
     Route: 065
  10. ALPRAZOLAM [Concomitant]
     Route: 065
  11. SOLU-MEDROL [Concomitant]
     Route: 065

REACTIONS (4)
  - BLINDNESS CORTICAL [None]
  - GRAND MAL CONVULSION [None]
  - HEADACHE [None]
  - VISUAL IMPAIRMENT [None]
